FAERS Safety Report 6239481-X (Version None)
Quarter: 2009Q2

REPORT INFORMATION
  Report Type: 
  Country: None (occurrence: None)
  Receive Date: 20090622
  Receipt Date: 20090610
  Transmission Date: 20091009
  Serious: Yes (Hospitalization, Other)
  Sender: FDA-Public Use
  Company Number: US-PFIZER INC-2009201097

PATIENT
  Sex: Male
  Weight: 84.807 kg

DRUGS (2)
  1. CHANTIX [Suspect]
     Dosage: UNK
     Dates: start: 20090102, end: 20090301
  2. PRILOSEC [Concomitant]
     Dosage: UNK

REACTIONS (5)
  - AGGRESSION [None]
  - DEPRESSED MOOD [None]
  - IMPRISONMENT [None]
  - PHYSICAL ASSAULT [None]
  - SUICIDAL IDEATION [None]
